FAERS Safety Report 5181012-X (Version None)
Quarter: 2006Q4

REPORT INFORMATION
  Report Type: 
  Country: None (occurrence: None)
  Receive Date: 20061220
  Receipt Date: 20061213
  Transmission Date: 20070319
  Serious: Yes (Other)
  Sender: FDA-Public Use
  Company Number: PHNU2006DE04158

PATIENT
  Sex: Male

DRUGS (4)
  1. TRILEPTAL [Suspect]
     Indication: EPILEPSY
     Dosage: 300 MG, BID
     Route: 048
     Dates: start: 20060901, end: 20061201
  2. TRILEPTAL [Suspect]
     Dosage: 750 MG/D
     Route: 048
     Dates: start: 20061201
  3. LEVOTHYROXINE SODIUM [Concomitant]
     Dates: start: 20040101
  4. ASPIRIN [Concomitant]
     Dates: start: 20050101

REACTIONS (3)
  - DEPRESSION [None]
  - DISTURBANCE IN ATTENTION [None]
  - DRUG LEVEL BELOW THERAPEUTIC [None]
